FAERS Safety Report 7583781-8 (Version None)
Quarter: 2011Q2

REPORT INFORMATION
  Report Type: 
  Country: None (occurrence: None)
  Receive Date: 20110630
  Receipt Date: 20100324
  Transmission Date: 20111010
  Serious: No
  Sender: FDA-Public Use
  Company Number: US-BAYER-201018046NA

PATIENT
  Age: 44 Year
  Sex: Female

DRUGS (1)
  1. MIRENA [Suspect]
     Indication: MENORRHAGIA
     Dosage: 20 ?G/D, CONT
     Route: 015
     Dates: start: 20091201, end: 20100616

REACTIONS (5)
  - VAGINAL HAEMORRHAGE [None]
  - BREAST TENDERNESS [None]
  - MENORRHAGIA [None]
  - GENITAL HAEMORRHAGE [None]
  - HYPOMENORRHOEA [None]
